FAERS Safety Report 5382134-0 (Version None)
Quarter: 2007Q3

REPORT INFORMATION
  Report Type: 
  Country: None (occurrence: None)
  Receive Date: 20070705
  Receipt Date: 20070622
  Transmission Date: 20080115
  Serious: Yes (Life-Threatening, Hospitalization, Other)
  Sender: FDA-Public Use
  Company Number: GXKR2007GB05389

PATIENT
  Age: 58 Year
  Sex: Male

DRUGS (5)
  1. ASPIRIN [Suspect]
     Indication: ELECTROCARDIOGRAM ST SEGMENT ELEVATION
     Dosage: 300 MG, ORAL
     Route: 048
  2. TENECTEPLASE (TENECTEPLASE) [Suspect]
     Indication: THROMBOLYSIS
  3. ENOXAPARIN SODIUM [Suspect]
     Indication: THROMBOLYSIS
     Dosage: 1 MG/KG, SUBCUTANEOUS
     Route: 058
  4. CLOPIDOGREL [Suspect]
     Indication: THROMBOLYSIS
     Dosage: 600 MG, ORAL
     Route: 048
  5. AMIODARONE HCL [Concomitant]

REACTIONS (8)
  - CARDIAC ARREST [None]
  - CORONARY ARTERY STENOSIS [None]
  - EPISTAXIS [None]
  - HAEMATEMESIS [None]
  - OBSTRUCTIVE AIRWAYS DISORDER [None]
  - TONGUE HAEMATOMA [None]
  - TONGUE HAEMORRHAGE [None]
  - VENTRICULAR FIBRILLATION [None]
